FAERS Safety Report 15605901 (Version 1)
Quarter: 2018Q4

REPORT INFORMATION
  Report Type: Spontaneous
  Country: IT (occurrence: IT)
  Receive Date: 20181112
  Receipt Date: 20181112
  Transmission Date: 20190205
  Serious: Yes (Other)
  Sender: FDA-Public Use
  Company Number: IT-ACCORD-091794

PATIENT
  Age: 65 Year
  Sex: Male
  Weight: 0 kg

DRUGS (5)
  1. DELTACORTENE [Concomitant]
     Active Substance: PREDNISONE
  2. DIBASE [Concomitant]
     Active Substance: CHOLECALCIFEROL
  3. METHOTREXATE. [Suspect]
     Active Substance: METHOTREXATE
     Indication: RHEUMATOID ARTHRITIS
     Route: 030
     Dates: start: 20180212, end: 20180419
  4. LANSOX [Concomitant]
     Active Substance: LANSOPRAZOLE
  5. ADENURIC [Concomitant]
     Active Substance: FEBUXOSTAT

REACTIONS (1)
  - Asthmatic crisis [Recovered/Resolved]

NARRATIVE: CASE EVENT DATE: 20180419
